FAERS Safety Report 4950922-8 (Version None)
Quarter: 2006Q1

REPORT INFORMATION
  Report Type: 
  Country: None (occurrence: None)
  Receive Date: 20060201
  Receipt Date: 20051007
  Transmission Date: 20060701
  Serious: No
  Sender: FDA-Public Use
  Company Number: 2005PV002889

PATIENT
  Age: 72 Year
  Sex: Male
  Weight: 92.5338 kg

DRUGS (2)
  1. BYETTA [Suspect]
     Indication: DIABETES MELLITUS NON-INSULIN-DEPENDENT
     Dosage: 5 MCG BID SC
     Route: 058
     Dates: start: 20051002, end: 20051001
  2. NPH INSULIN [Concomitant]

REACTIONS (9)
  - ABDOMINAL DISTENSION [None]
  - ARTHRALGIA [None]
  - DECREASED APPETITE [None]
  - FLATULENCE [None]
  - NAUSEA [None]
  - NON-CARDIAC CHEST PAIN [None]
  - PAIN [None]
  - ROAD TRAFFIC ACCIDENT [None]
  - SHOULDER PAIN [None]
